FAERS Safety Report 6216822-0 (Version None)
Quarter: 2009Q2

REPORT INFORMATION
  Report Type: 
  Country: None (occurrence: None)
  Receive Date: 20090603
  Receipt Date: 20090603
  Transmission Date: 20091009
  Serious: Yes (Other)
  Sender: FDA-Public Use
  Company Number: None

PATIENT
  Sex: Female
  Weight: 91.173 kg

DRUGS (1)
  1. PROAIR HFA [Suspect]
     Indication: ASTHMA
     Dosage: 2 PUFFS 4-6 A DAY ORAL
     Route: 048
     Dates: start: 20090428

REACTIONS (3)
  - ASTHMA [None]
  - DEVICE FAILURE [None]
  - DRUG EFFECT DECREASED [None]
